FAERS Safety Report 8377760-0 (Version None)
Quarter: 2012Q2

REPORT INFORMATION
  Report Type: 
  Country: None (occurrence: None)
  Receive Date: 20120522
  Receipt Date: 20120511
  Transmission Date: 20120825
  Serious: No
  Sender: FDA-Public Use
  Company Number: US-ASTRAZENECA-2012SE30684

PATIENT
  Age: 39 Year
  Sex: Female

DRUGS (7)
  1. NEXIUM [Suspect]
     Route: 048
  2. STOOL SOFTENER [Concomitant]
  3. SUCRALFATE [Concomitant]
  4. ZERTEC CETRIZINE [Concomitant]
  5. PRILOSEC [Suspect]
     Route: 048
  6. SPRINTEC [Concomitant]
  7. ANAFRANIL [Concomitant]

REACTIONS (3)
  - DRUG DOSE OMISSION [None]
  - GASTROOESOPHAGEAL REFLUX DISEASE [None]
  - HIATUS HERNIA [None]
